FAERS Safety Report 4928780-7 (Version None)
Quarter: 2006Q1

REPORT INFORMATION
  Report Type: 
  Country: None (occurrence: None)
  Receive Date: 20060223
  Receipt Date: 20060213
  Transmission Date: 20060701
  Serious: Yes (Other)
  Sender: FDA-Public Use
  Company Number: 2006022259

PATIENT
  Sex: Female

DRUGS (2)
  1. CELEBREX [Suspect]
     Indication: REPETITIVE STRAIN INJURY
     Dates: start: 20020101
  2. BEXTRA [Suspect]
     Indication: REPETITIVE STRAIN INJURY
     Dates: start: 20020101

REACTIONS (1)
  - CARDIAC VALVE DISEASE [None]
